FAERS Safety Report 13609108 (Version 1)
Quarter: 2017Q2

REPORT INFORMATION
  Report Type: Report from Study
  Country: BR (occurrence: BR)
  Receive Date: 20170602
  Receipt Date: 20170602
  Transmission Date: 20170830
  Serious: Yes (Other)
  Sender: FDA-Public Use
  Company Number: PHHY2017BR081516

PATIENT
  Sex: Female
  Weight: 59 kg

DRUGS (2)
  1. ACLASTA [Suspect]
     Active Substance: ZOLEDRONIC ACID
     Route: 042
     Dates: start: 201704
  2. ACLASTA [Suspect]
     Active Substance: ZOLEDRONIC ACID
     Indication: OSTEOPOROSIS
     Dosage: UNK UNK, Q12MO
     Route: 042

REACTIONS (8)
  - Drug intolerance [Unknown]
  - Arthralgia [Unknown]
  - Tibia fracture [Unknown]
  - Pyrexia [Recovering/Resolving]
  - Joint swelling [Unknown]
  - Moaning [Unknown]
  - Bone pain [Unknown]
  - Fall [Unknown]
